FAERS Safety Report 5692999-0 (Version None)
Quarter: 2008Q2

REPORT INFORMATION
  Report Type: 
  Country: None (occurrence: None)
  Receive Date: 20080401
  Receipt Date: 20080313
  Transmission Date: 20081010
  Serious: Yes (Death)
  Sender: FDA-Public Use
  Company Number: 430001J08BRA

PATIENT
  Age: 2 Year
  Sex: Female

DRUGS (1)
  1. NOVANTRONE [Suspect]
     Indication: LEUKAEMIA
     Dosage: OTHER
     Dates: start: 19950102, end: 19950106

REACTIONS (1)
  - CARDIAC ARREST [None]
